FAERS Safety Report 21489803 (Version 5)
Quarter: 2024Q4

REPORT INFORMATION
  Report Type: Report from Study
  Country: DE (occurrence: DE)
  Receive Date: 20221021
  Receipt Date: 20241014
  Transmission Date: 20250115
  Serious: Yes (Hospitalization)
  Sender: JOHNSON AND JOHNSON
  Company Number: DE-JNJFOC-20221020099

PATIENT
  Age: 48 Year
  Sex: Male
  Weight: 96 kg

DRUGS (6)
  1. GUSELKUMAB [Suspect]
     Active Substance: GUSELKUMAB
     Indication: Psoriasis
     Dosage: WEEK 0
     Route: 065
     Dates: start: 20220202
  2. GUSELKUMAB [Suspect]
     Active Substance: GUSELKUMAB
     Dosage: WEEK 4
     Route: 065
     Dates: start: 20220302
  3. GUSELKUMAB [Suspect]
     Active Substance: GUSELKUMAB
     Dosage: WEEK 12
     Route: 065
     Dates: start: 20220427
  4. GUSELKUMAB [Suspect]
     Active Substance: GUSELKUMAB
     Dosage: WEEK 20
     Route: 065
     Dates: start: 20220622
  5. GUSELKUMAB [Suspect]
     Active Substance: GUSELKUMAB
     Dosage: WEEK 28
     Route: 065
     Dates: start: 20220817
  6. ELIQUIS [Concomitant]
     Active Substance: APIXABAN
     Indication: Venous thrombosis
     Route: 048
     Dates: start: 20210531, end: 20220331

REACTIONS (3)
  - Pneumonia [Recovered/Resolved]
  - Pneumonia [Recovered/Resolved]
  - Pulmonary embolism [Recovered/Resolved]

NARRATIVE: CASE EVENT DATE: 20221002
